FAERS Safety Report 15290373 (Version 1)
Quarter: 2018Q3

REPORT INFORMATION
  Report Type: Spontaneous
  Country: US (occurrence: US)
  Receive Date: 20180817
  Receipt Date: 20180817
  Transmission Date: 20181010
  Serious: No
  Sender: FDA-Public Use
  Company Number: US-009507513-1807USA009137

PATIENT
  Age: 61 Year
  Sex: Female

DRUGS (3)
  1. KEYTRUDA [Suspect]
     Active Substance: PEMBROLIZUMAB
     Indication: SQUAMOUS CELL CARCINOMA OF THE VULVA
     Dosage: 200 MG 21 DAY CYCLES
  2. CISPLATIN. [Concomitant]
     Active Substance: CISPLATIN
     Indication: SQUAMOUS CELL CARCINOMA OF THE VULVA
     Dosage: 40 MG/M2, UNK
  3. CISPLATIN. [Concomitant]
     Active Substance: CISPLATIN
     Indication: CHEMOTHERAPY

REACTIONS (5)
  - Nausea [Unknown]
  - Toxicity to various agents [Unknown]
  - Diarrhoea [Unknown]
  - Arthralgia [Unknown]
  - Off label use [Unknown]
